FAERS Safety Report 9794637 (Version 1)
Quarter: 2014Q1

REPORT INFORMATION
  Report Type: Spontaneous
  Country: TW (occurrence: TW)
  Receive Date: 20140102
  Receipt Date: 20140102
  Transmission Date: 20141002
  Serious: Yes (Other)
  Sender: FDA-Public Use
  Company Number: PHHY2013TW152144

PATIENT
  Age: 13 Year
  Sex: Male

DRUGS (3)
  1. BETAMETHASONE [Suspect]
     Indication: KERATITIS
     Dosage: UNK
     Route: 061
  2. CROMLYN [Concomitant]
  3. CETIRIZINE [Concomitant]
     Route: 048

REACTIONS (2)
  - Glaucoma [Unknown]
  - Intraocular pressure test [Unknown]
